FAERS Safety Report 18895741 (Version 5)
Quarter: 2021Q4

REPORT INFORMATION
  Report Type: Report from Study
  Country: US (occurrence: None)
  Receive Date: 20210215
  Receipt Date: 20211124
  Transmission Date: 20220304
  Serious: Yes (Hospitalization, Other)
  Sender: FDA-Public Use
  Company Number: US-MERCK HEALTHCARE KGAA-9193825

PATIENT
  Age: 50 Year
  Sex: Female
  Weight: 85 kg

DRUGS (15)
  1. CLADRIBINE [Suspect]
     Active Substance: CLADRIBINE
     Indication: Relapsing multiple sclerosis
     Dosage: FIRST MONTH THERAPY
     Dates: start: 20200409, end: 20200414
  2. CLADRIBINE [Suspect]
     Active Substance: CLADRIBINE
     Dosage: SECOND MONTH THERAPY
     Dates: start: 20200506, end: 20200511
  3. GABAPENTIN [Concomitant]
     Active Substance: GABAPENTIN
     Indication: Neuralgia
     Route: 048
     Dates: start: 20200228
  4. PRAMIPEXOLE [Concomitant]
     Active Substance: PRAMIPEXOLE
     Indication: Restless legs syndrome
     Route: 048
     Dates: start: 20200228
  5. PREDNISONE [Concomitant]
     Active Substance: PREDNISONE
     Indication: Multiple sclerosis
     Route: 048
     Dates: start: 20200317
  6. VITAMIN D3 [Concomitant]
     Active Substance: CHOLECALCIFEROL
     Indication: Vitamin D decreased
     Route: 048
     Dates: start: 20170919
  7. AMANTADINE HYDROCHLORIDE [Concomitant]
     Active Substance: AMANTADINE HYDROCHLORIDE
     Indication: Multiple sclerosis
     Route: 048
     Dates: start: 20200414
  8. IBUPROFEN [Concomitant]
     Active Substance: IBUPROFEN
     Indication: Pain
     Route: 048
  9. ACETAMINOPHEN [Concomitant]
     Active Substance: ACETAMINOPHEN
     Indication: Pain
     Route: 048
     Dates: start: 20191122
  10. ACETAMINOPHEN [Concomitant]
     Active Substance: ACETAMINOPHEN
     Indication: Pyrexia
  11. ENOXAPARIN [Concomitant]
     Active Substance: ENOXAPARIN
     Route: 058
     Dates: start: 20200525
  12. LOPERAMIDE [Concomitant]
     Active Substance: LOPERAMIDE
     Indication: Diarrhoea
     Dosage: AS OF 26 MAY 2020, PATIENT HAD TAKEN 3 DOSES.
     Route: 048
     Dates: start: 20200525
  13. POTASSIUM CHLORIDE [Concomitant]
     Active Substance: POTASSIUM CHLORIDE
     Indication: Product used for unknown indication
     Route: 048
     Dates: start: 20200526
  14. SODIUM CHLORIDE [Concomitant]
     Active Substance: SODIUM CHLORIDE
     Indication: Product used for unknown indication
     Dosage: 0.9 % (NS) IV SOLUTION 1000 ML PER DOSE AT INITIAL RATE OF 999ML/HR AND SUBSEQUENTLY 125 ML/HR.
     Dates: start: 20200525
  15. FOLIC ACID [Concomitant]
     Active Substance: FOLIC ACID
     Indication: Routine health maintenance
     Route: 048
     Dates: start: 20201222

REACTIONS (2)
  - Kidney infection [Recovered/Resolved with Sequelae]
  - Lymphocyte count decreased [Recovered/Resolved with Sequelae]

NARRATIVE: CASE EVENT DATE: 20200525
